FAERS Safety Report 7591611-3 (Version None)
Quarter: 2011Q3

REPORT INFORMATION
  Report Type: 
  Country: None (occurrence: None)
  Receive Date: 20110706
  Receipt Date: 20110624
  Transmission Date: 20111222
  Serious: Yes (Life-Threatening, Hospitalization)
  Sender: FDA-Public Use
  Company Number: US-BAYER-2011-005043

PATIENT
  Sex: Female
  Weight: 97.506 kg

DRUGS (8)
  1. YASMIN [Suspect]
     Dosage: UNK
     Dates: start: 20080816, end: 20090701
  2. NSAID'S [Concomitant]
  3. BLOOD PRESSURE MEDICATION (NOS) [Concomitant]
     Dosage: UNK
     Dates: start: 20080101, end: 20090101
  4. YAZ [Suspect]
     Dosage: UNK
     Dates: start: 20080816, end: 20090701
  5. HEART MEDICATION [Concomitant]
  6. DROSPIRENONE AND ETHINYL ESTRADIOL [Suspect]
     Indication: PRODUCT USED FOR UNKNOWN INDICATION
  7. CELEBREX [Concomitant]
     Dosage: UNK
     Dates: start: 20000101
  8. NAPROXEN (ALEVE) [Concomitant]
     Dosage: UNK
     Dates: start: 20000101

REACTIONS (3)
  - CEREBROVASCULAR ACCIDENT [None]
  - PAIN [None]
  - DEEP VEIN THROMBOSIS [None]
